FAERS Safety Report 25044993 (Version 1)
Quarter: 2025Q1

REPORT INFORMATION
  Report Type: Spontaneous
  Country: NO (occurrence: NO)
  Receive Date: 20250306
  Receipt Date: 20250306
  Transmission Date: 20250409
  Serious: Yes (Other)
  Sender: RANBAXY
  Company Number: NO-SUN PHARMACEUTICAL INDUSTRIES LTD-2025RR-498312

PATIENT
  Age: 41 Year
  Sex: Female

DRUGS (2)
  1. GANIRELIX ACETATE [Suspect]
     Active Substance: GANIRELIX ACETATE
     Indication: Assisted fertilisation
     Dosage: 0.25 MILLIGRAM, DAILY
     Route: 058
     Dates: start: 20240829, end: 20240901
  2. MENOPUR [Suspect]
     Active Substance: FOLLITROPIN\LUTEINIZING HORMONE
     Indication: Assisted fertilisation
     Dosage: 375 INTERNATIONAL UNIT, DAILY
     Route: 058
     Dates: start: 20240824, end: 20240831

REACTIONS (3)
  - Ill-defined disorder [Recovered/Resolved]
  - Cardiac dysfunction [Recovered/Resolved]
  - Hypotension [Recovered/Resolved]

NARRATIVE: CASE EVENT DATE: 20241015
